FAERS Safety Report 4294310-9 (Version None)
Quarter: 2004Q1

REPORT INFORMATION
  Report Type: 
  Country: None (occurrence: None)
  Receive Date: 20040211
  Receipt Date: 20040203
  Transmission Date: 20041129
  Serious: Yes (Death)
  Sender: FDA-Public Use
  Company Number: A0496711A

PATIENT
  Age: 12 Year
  Sex: Female

DRUGS (2)
  1. PAXIL [Suspect]
     Indication: ILL-DEFINED DISORDER
     Dosage: ORAL
     Route: 048
  2. SERTRALINE HCL [Suspect]
     Indication: ILL-DEFINED DISORDER

REACTIONS (1)
  - COMPLETED SUICIDE [None]
